FAERS Safety Report 5236700-3 (Version None)
Quarter: 2007Q1

REPORT INFORMATION
  Report Type: 
  Country: None (occurrence: None)
  Receive Date: 20070209
  Receipt Date: 20070124
  Transmission Date: 20070707
  Serious: Yes (Other)
  Sender: FDA-Public Use
  Company Number: S07-AUT-00534-01

PATIENT
  Age: 57 Year
  Sex: Female

DRUGS (5)
  1. CITALOPRAM HYDROBROMIDE [Suspect]
     Indication: PANIC DISORDER
     Dosage: 40 MG QD PO
     Route: 048
     Dates: start: 20060301
  2. DELPRAL(TIAPRIDE HYDROCHLORIDE) [Suspect]
     Dosage: 400 MG QD PO
     Route: 048
     Dates: start: 20060301, end: 20060307
  3. BURONIL (MELPERONE HYDROCHLORIDE) [Concomitant]
  4. BUSCOPAN COMP. [Concomitant]
  5. OXAZEPAM [Concomitant]

REACTIONS (1)
  - DYSKINESIA [None]
